FAERS Safety Report 8500328-X (Version None)
Quarter: 2012Q3

REPORT INFORMATION
  Report Type: 
  Country: None (occurrence: None)
  Receive Date: 20120710
  Receipt Date: 20120210
  Transmission Date: 20120928
  Serious: No
  Sender: FDA-Public Use
  Company Number: US-MYLANLABS-2012S1003165

PATIENT
  Age: 49 Year
  Sex: Male

DRUGS (1)
  1. ONDANSETRON [Suspect]
     Indication: NAUSEA
     Route: 048
     Dates: start: 20120110, end: 20120110

REACTIONS (1)
  - HEADACHE [None]
